FAERS Safety Report 15372451 (Version 2)
Quarter: 2018Q3

REPORT INFORMATION
  Report Type: Spontaneous
  Country: MX (occurrence: MX)
  Receive Date: 20180911
  Receipt Date: 20180925
  Transmission Date: 20181010
  Serious: Yes (Other)
  Sender: FDA-Public Use
  Company Number: MX-009507513-1809MEX004099

PATIENT
  Age: 68 Year
  Sex: Female

DRUGS (1)
  1. KEYTRUDA [Suspect]
     Active Substance: PEMBROLIZUMAB
     Indication: NON-SMALL CELL LUNG CANCER
     Dosage: (STRENGTH: 100MG/4ML), 200 MG, Q3W
     Dates: start: 201707

REACTIONS (5)
  - Rash [Recovered/Resolved]
  - Autoimmune arthritis [Recovered/Resolved]
  - Pneumonitis [Recovered/Resolved]
  - Autoimmune hypothyroidism [Recovered/Resolved]
  - Autoimmune thyroiditis [Recovered/Resolved]

NARRATIVE: CASE EVENT DATE: 201709
